FAERS Safety Report 10275700 (Version 1)
Quarter: 2014Q3

REPORT INFORMATION
  Report Type: Spontaneous
  Country: US (occurrence: US)
  Receive Date: 20140703
  Receipt Date: 20140703
  Transmission Date: 20150326
  Serious: No
  Sender: FDA-Public Use
  Company Number: US-BAYER-2014-100123

PATIENT
  Age: 75 Year
  Sex: Female
  Weight: 70 kg

DRUGS (5)
  1. ALEVE [Suspect]
     Active Substance: NAPROXEN SODIUM
     Indication: BACK PAIN
     Dosage: UNK UNK, PRN
     Route: 048
  2. BAYER LOW DOSE [Concomitant]
     Active Substance: ASPIRIN
  3. FISH OIL [Concomitant]
     Active Substance: FISH OIL
  4. CALCIUM [Concomitant]
     Active Substance: CALCIUM
  5. ALLEGRA [Concomitant]
     Active Substance: FEXOFENADINE HYDROCHLORIDE

REACTIONS (1)
  - Extra dose administered [Unknown]

NARRATIVE: CASE EVENT DATE: 20140701
